FAERS Safety Report 10311903 (Version 1)
Quarter: 2014Q3

REPORT INFORMATION
  Report Type: Spontaneous
  Country: US (occurrence: None)
  Receive Date: 20140715
  Receipt Date: 20140715
  Transmission Date: 20150326
  Serious: Yes (Hospitalization)
  Sender: FDA-Public Use
  Company Number: 2014-US-008401

PATIENT
  Age: 21 Year
  Sex: Female

DRUGS (1)
  1. XYREM [Suspect]
     Active Substance: SODIUM OXYBATE
     Indication: NARCOLEPSY
     Route: 048
     Dates: start: 201212, end: 2013

REACTIONS (3)
  - Urinary tract infection [None]
  - Pneumonia [None]
  - Kidney infection [None]

NARRATIVE: CASE EVENT DATE: 201406
